FAERS Safety Report 4565967-X (Version None)
Quarter: 2005Q1

REPORT INFORMATION
  Report Type: 
  Country: None (occurrence: None)
  Receive Date: 20050128
  Receipt Date: 20050105
  Transmission Date: 20050727
  Serious: Yes (Hospitalization)
  Sender: FDA-Public Use
  Company Number: B0133705A

PATIENT
  Age: 34 Year
  Sex: Male
  Weight: 162.8 kg

DRUGS (2)
  1. ZYBAN [Suspect]
     Indication: EX-SMOKER
     Dosage: SEE DOSAGE TEXT / ORAL
     Route: 048
     Dates: start: 20020111, end: 20020118
  2. INSULIN LISPRO INJECTION (INSULIN LISPRO) [Suspect]
     Indication: DIABETES MELLITUS INSULIN-DEPENDENT
     Dosage: SUBCUTANEOUS
     Route: 058
     Dates: start: 20010101

REACTIONS (10)
  - ARTHRALGIA [None]
  - BLOOD PRESSURE DECREASED [None]
  - CHILLS [None]
  - DIABETES MELLITUS INADEQUATE CONTROL [None]
  - INFLAMMATION [None]
  - OEDEMA PERIPHERAL [None]
  - PYREXIA [None]
  - SERUM SICKNESS [None]
  - URTICARIA GENERALISED [None]
  - VOMITING [None]
